FAERS Safety Report 23406454 (Version 2)
Quarter: 2024Q3

REPORT INFORMATION
  Report Type: Report from Study
  Country: US (occurrence: US)
  Receive Date: 20240116
  Receipt Date: 20240904
  Transmission Date: 20241016
  Serious: Yes (Other)
  Sender: ABBVIE
  Company Number: US-ABBVIE-5587615

PATIENT
  Sex: Female

DRUGS (1)
  1. RINVOQ [Suspect]
     Active Substance: UPADACITINIB
     Indication: Rheumatoid arthritis
     Route: 048
     Dates: start: 20230901

REACTIONS (4)
  - Intervertebral disc operation [Unknown]
  - Carpal tunnel syndrome [Unknown]
  - Spinal fusion surgery [Unknown]
  - Pain [Unknown]

NARRATIVE: CASE EVENT DATE: 20230101
